FAERS Safety Report 14251525 (Version 5)
Quarter: 2018Q1

REPORT INFORMATION
  Report Type: Report from Study
  Country: CA (occurrence: CA)
  Receive Date: 20171205
  Receipt Date: 20180207
  Transmission Date: 20180508
  Serious: Yes (Hospitalization, Other)
  Sender: FDA-Public Use
  Company Number: PHHY2015CA118594

PATIENT
  Age: 59 Year
  Sex: Female
  Weight: 43 kg

DRUGS (6)
  1. SANDOSTATIN [Suspect]
     Active Substance: OCTREOTIDE ACETATE
     Indication: PANCREATIC NEUROENDOCRINE TUMOUR METASTATIC
     Dosage: 100 UG, TID
     Route: 058
     Dates: start: 20150918
  2. SANDOSTATIN LAR DEPOT [Suspect]
     Active Substance: OCTREOTIDE ACETATE
     Indication: PANCREATIC NEUROENDOCRINE TUMOUR METASTATIC
     Dosage: 30 MG, QMO
     Route: 030
     Dates: start: 20151001
  3. IODINE. [Suspect]
     Active Substance: IODINE
     Indication: PRODUCT USED FOR UNKNOWN INDICATION
     Route: 065
  4. AFINITOR [Suspect]
     Active Substance: EVEROLIMUS
     Dosage: 10 MG, QD
     Route: 048
     Dates: end: 20171128
  5. AFINITOR [Suspect]
     Active Substance: EVEROLIMUS
     Indication: PRODUCT USED FOR UNKNOWN INDICATION
     Dosage: 10 MG, QD
     Route: 048
     Dates: start: 20151025, end: 20170621
  6. SANDOSTATIN LAR DEPOT [Suspect]
     Active Substance: OCTREOTIDE ACETATE
     Dosage: 60 MG, QMO
     Route: 030
     Dates: start: 20171128

REACTIONS (40)
  - Oedema [Unknown]
  - Tongue ulceration [Recovering/Resolving]
  - Ear discomfort [Unknown]
  - Haemorrhage [Unknown]
  - Dizziness [Unknown]
  - Injection site pain [Recovered/Resolved]
  - Abdominal discomfort [Unknown]
  - Needle issue [Unknown]
  - Heart rate increased [Unknown]
  - Weight decreased [Unknown]
  - Mouth ulceration [Recovered/Resolved]
  - Oral herpes [Unknown]
  - Pruritus [Recovering/Resolving]
  - Drug ineffective [Unknown]
  - Pancreatitis [Unknown]
  - Anxiety [Unknown]
  - Malaise [Unknown]
  - Blood pressure systolic increased [Unknown]
  - Limb injury [Unknown]
  - Peripheral swelling [Unknown]
  - Diabetes mellitus [Unknown]
  - Pain [Unknown]
  - Urticaria [Unknown]
  - Pain in extremity [Unknown]
  - Injection site induration [Unknown]
  - Decreased appetite [Unknown]
  - Hyperglycaemia [Unknown]
  - Vomiting [Unknown]
  - Iodine allergy [Recovering/Resolving]
  - Dysuria [Unknown]
  - Injection site hypersensitivity [Unknown]
  - Malignant neoplasm progression [Unknown]
  - Body temperature decreased [Unknown]
  - Musculoskeletal disorder [Unknown]
  - Rash [Recovering/Resolving]
  - Rhinorrhoea [Unknown]
  - Colitis ischaemic [Unknown]
  - Hypoglycaemia [Unknown]
  - Abdominal pain [Unknown]
  - Nausea [Unknown]

NARRATIVE: CASE EVENT DATE: 20151125
